FAERS Safety Report 6530750-2 (Version None)
Quarter: 2010Q1

REPORT INFORMATION
  Report Type: 
  Country: None (occurrence: None)
  Receive Date: 20100108
  Receipt Date: 20090120
  Transmission Date: 20100710
  Serious: No
  Sender: FDA-Public Use
  Company Number: A0764332A

PATIENT
  Age: 65 Year
  Sex: Female

DRUGS (5)
  1. LOVAZA [Suspect]
     Indication: BLOOD CHOLESTEROL INCREASED
     Dosage: 4G PER DAY
     Route: 048
     Dates: start: 20071101
  2. COENZYME Q10 [Concomitant]
  3. CALCIUM [Concomitant]
  4. VITAMINS [Concomitant]
  5. THYROID TAB [Concomitant]

REACTIONS (2)
  - BLOOD CHOLESTEROL INCREASED [None]
  - MUSCLE SPASMS [None]
